FAERS Safety Report 9579296 (Version 1)
Quarter: 2013Q4

REPORT INFORMATION
  Report Type: Spontaneous
  Country: US (occurrence: US)
  Receive Date: 20131001
  Receipt Date: 20131001
  Transmission Date: 20140711
  Serious: No
  Sender: FDA-Public Use
  Company Number: US-AMGEN-USASP2013017443

PATIENT
  Age: 65 Year
  Sex: Male
  Weight: 90.7 kg

DRUGS (6)
  1. ENBREL [Suspect]
     Indication: PSORIATIC ARTHROPATHY
     Dosage: 50 MG, QWK
     Route: 058
  2. RANITIDINE [Concomitant]
     Dosage: 150 MG, UNK
  3. SIMVASTATIN [Concomitant]
     Dosage: 40 MG, UNK
  4. ZETIA [Concomitant]
     Dosage: 10 MG, UNK
  5. ASPIRIN BUFFERED [Concomitant]
     Dosage: 325 MG, UNK
  6. MULTIVITAMINS, PLAIN [Concomitant]
     Dosage: UNK

REACTIONS (2)
  - Herpes zoster [Recovered/Resolved]
  - Tinea cruris [Recovered/Resolved]
